FAERS Safety Report 6555591-1 (Version None)
Quarter: 2010Q1

REPORT INFORMATION
  Report Type: 
  Country: None (occurrence: None)
  Receive Date: 20100128
  Receipt Date: 20100122
  Transmission Date: 20100710
  Serious: Yes (Hospitalization)
  Sender: FDA-Public Use
  Company Number: FR-BRISTOL-MYERS SQUIBB COMPANY-14946784

PATIENT
  Age: 93 Year
  Sex: Female

DRUGS (1)
  1. IRBESARTAN AND HYDROCHLOROTHIAZIDE [Suspect]
     Dosage: 1 DF =IRBESARTAN 300 MG, HCTZ 12.5 MG TAKEN 1 TAB/D
     Route: 048
     Dates: end: 20090819

REACTIONS (3)
  - EPILEPSY [None]
  - FALL [None]
  - HYPONATRAEMIA [None]
